FAERS Safety Report 11781502 (Version 2)
Quarter: 2015Q4

REPORT INFORMATION
  Report Type: Spontaneous
  Country: GB (occurrence: GB)
  Receive Date: 20151126
  Receipt Date: 20151127
  Transmission Date: 20160305
  Serious: Yes (Other)
  Sender: FDA-Public Use
  Company Number: PHHY2015GB151798

PATIENT
  Age: 59 Year
  Sex: Female

DRUGS (2)
  1. ACZ885 [Suspect]
     Active Substance: CANAKINUMAB
     Indication: CRYOPYRIN ASSOCIATED PERIODIC SYNDROME
     Route: 065
  2. ANAKINRA [Suspect]
     Active Substance: ANAKINRA
     Indication: CRYOPYRIN ASSOCIATED PERIODIC SYNDROME
     Dosage: 300 MG, QD
     Route: 065

REACTIONS (4)
  - Cryopyrin associated periodic syndrome [Unknown]
  - Meningitis aseptic [Unknown]
  - Therapeutic response decreased [Unknown]
  - Condition aggravated [Unknown]
